FAERS Safety Report 6037017-X (Version None)
Quarter: 2009Q1

REPORT INFORMATION
  Report Type: 
  Country: None (occurrence: None)
  Receive Date: 20090114
  Receipt Date: 20090105
  Transmission Date: 20090719
  Serious: Yes (Death, Hospitalization)
  Sender: FDA-Public Use
  Company Number: NL-AVENTIS-200821541GDDC

PATIENT
  Age: 62 Year
  Sex: Male

DRUGS (7)
  1. DOCETAXEL [Suspect]
     Route: 042
     Dates: start: 20081006, end: 20081124
  2. CARBOPLATIN [Suspect]
     Route: 042
     Dates: start: 20081006, end: 20081124
  3. DEXAMETHASONE TAB [Concomitant]
     Dates: start: 20080201, end: 20081223
  4. OXYCONTIN [Concomitant]
     Dates: start: 20081003, end: 20081223
  5. OXYCODONE HCL [Concomitant]
     Dates: start: 20080407, end: 20081223
  6. PCM [Concomitant]
     Dates: start: 20080408, end: 20081223
  7. METOPROLOL [Concomitant]
     Dates: start: 20071127, end: 20081223

REACTIONS (4)
  - DIARRHOEA [None]
  - HYPOKALAEMIA [None]
  - HYPONATRAEMIA [None]
  - METASTASES TO MENINGES [None]
